FAERS Safety Report 22398086 (Version 3)
Quarter: 2023Q4

REPORT INFORMATION
  Report Type: Spontaneous
  Country: CN (occurrence: CN)
  Receive Date: 20230602
  Receipt Date: 20231017
  Transmission Date: 20240110
  Serious: Yes (Other)
  Sender: FDA-Public Use
  Company Number: CN-SUN PHARMACEUTICAL INDUSTRIES LTD-2023R1-390208

PATIENT
  Age: 52 Year
  Sex: Male

DRUGS (4)
  1. ESCITALOPRAM [Suspect]
     Active Substance: ESCITALOPRAM OXALATE
     Indication: Depression
     Dosage: 5 MILLIGRAM, DAILY
     Route: 065
  2. ESCITALOPRAM [Suspect]
     Active Substance: ESCITALOPRAM OXALATE
     Dosage: 15 MILLIGRAM, DAILY
     Route: 065
  3. LORAZEPAM [Suspect]
     Active Substance: LORAZEPAM
     Indication: Depression
     Dosage: 1 MILLIGRAM, DAILY
     Route: 065
  4. TRAZODONE [Suspect]
     Active Substance: TRAZODONE HYDROCHLORIDE
     Indication: Depression
     Dosage: 100 MILLIGRAM, DAILY
     Route: 065

REACTIONS (1)
  - Salivary hypersecretion [Recovered/Resolved]
